FAERS Safety Report 19694435 (Version 1)
Quarter: 2021Q3

REPORT INFORMATION
  Report Type: Report from Study
  Country: US (occurrence: US)
  Receive Date: 20210813
  Receipt Date: 20210813
  Transmission Date: 20211014
  Serious: Yes (Other)
  Sender: FDA-Public Use
  Company Number: US-ASTELLAS-2021US030251

PATIENT
  Age: 60 Year
  Sex: Male

DRUGS (1)
  1. ASG?22CE [Suspect]
     Active Substance: ENFORTUMAB VEDOTIN
     Indication: TRANSITIONAL CELL CARCINOMA
     Dosage: 1.0 MG/KG, CYCLIC (1,8,15 EVERY 28 DAYS)
     Route: 042
     Dates: start: 20210301, end: 20210701

REACTIONS (5)
  - Thrombocytopenia [Not Recovered/Not Resolved]
  - Ocular toxicity [Unknown]
  - Hyperglycaemia [Not Recovered/Not Resolved]
  - Neuropathy peripheral [Not Recovered/Not Resolved]
  - Neutropenia [Not Recovered/Not Resolved]

NARRATIVE: CASE EVENT DATE: 20210315
